FAERS Safety Report 7404873-X (Version None)
Quarter: 2011Q1

REPORT INFORMATION
  Report Type: 
  Country: None (occurrence: None)
  Receive Date: 20110301
  Receipt Date: 20101005
  Transmission Date: 20110831
  Serious: Yes (Hospitalization)
  Sender: FDA-Public Use
  Company Number: RB-16852-2010

PATIENT
  Sex: Female

DRUGS (1)
  1. SUBUTEX [Suspect]
     Indication: DRUG DEPENDENCE
     Dosage: (16 MG QD TRANSPLACENTAL)
     Route: 064
     Dates: start: 20100415, end: 20100916

REACTIONS (7)
  - DRUG WITHDRAWAL SYNDROME NEONATAL [None]
  - CYANOSIS [None]
  - DIARRHOEA [None]
  - CRYING [None]
  - NAUSEA [None]
  - VOMITING [None]
  - PYREXIA [None]
